FAERS Safety Report 8128817-0 (Version None)
Quarter: 2012Q1

REPORT INFORMATION
  Report Type: 
  Country: None (occurrence: None)
  Receive Date: 20120210
  Receipt Date: 20110405
  Transmission Date: 20120608
  Serious: No
  Sender: FDA-Public Use
  Company Number: US-BRISTOL-MYERS SQUIBB COMPANY-15606197

PATIENT
  Age: 56 Year
  Sex: Female

DRUGS (4)
  1. HYDROCHLOROTHIAZIDE [Concomitant]
  2. ORENCIA [Suspect]
     Indication: RHEUMATOID ARTHRITIS
     Dosage: 5 MONTHS AGO, NO OF INF = 5
  3. LEFLUNOMIDE [Concomitant]
  4. METOCLOPRAMIDE [Concomitant]

REACTIONS (4)
  - INFLAMMATION [None]
  - URINE OUTPUT INCREASED [None]
  - PAIN IN EXTREMITY [None]
  - ASTHENIA [None]
